FAERS Safety Report 8254812-7 (Version None)
Quarter: 2012Q2

REPORT INFORMATION
  Report Type: 
  Country: None (occurrence: None)
  Receive Date: 20120403
  Receipt Date: 20120329
  Transmission Date: 20120825
  Serious: Yes (Other)
  Sender: FDA-Public Use
  Company Number: PHHY2012MX027460

PATIENT
  Sex: Male

DRUGS (1)
  1. EXJADE [Suspect]
     Indication: IRON METABOLISM DISORDER
     Dosage: UNK UKN, UNK
     Route: 048

REACTIONS (1)
  - LEUKAEMIA [None]
